FAERS Safety Report 16385064 (Version 1)
Quarter: 2019Q2

REPORT INFORMATION
  Report Type: Report from Study
  Country: CA (occurrence: CA)
  Receive Date: 20190603
  Receipt Date: 20190603
  Transmission Date: 20190711
  Serious: Yes (Other)
  Sender: FDA-Public Use
  Company Number: CA-JNJFOC-20190540679

PATIENT
  Age: 51 Year
  Sex: Male
  Weight: 114 kg

DRUGS (1)
  1. STELARA [Suspect]
     Active Substance: USTEKINUMAB
     Indication: CROHN^S DISEASE
     Dosage: STRENGTH = 90 MG
     Route: 058

REACTIONS (4)
  - Ear infection [Unknown]
  - Eye infection [Unknown]
  - Tooth fracture [Unknown]
  - Cellulitis [Unknown]

NARRATIVE: CASE EVENT DATE: 201905
